FAERS Safety Report 18312060 (Version 1)
Quarter: 2020Q3

REPORT INFORMATION
  Report Type: Spontaneous
  Country: US (occurrence: US)
  Receive Date: 20200925
  Receipt Date: 20200925
  Transmission Date: 20201103
  Serious: Yes (Other)
  Sender: FDA-Public Use
  Company Number: None

PATIENT
  Sex: Female
  Weight: 61.24 kg

DRUGS (15)
  1. GINGER GARLIC [Concomitant]
  2. JALOPENO [Concomitant]
  3. SYMBICORT [Concomitant]
     Active Substance: BUDESONIDE\FORMOTEROL FUMARATE DIHYDRATE
  4. SESAME [Concomitant]
     Active Substance: SESAME SEED
  5. OMEPRAZOLE. [Concomitant]
     Active Substance: OMEPRAZOLE
  6. MONTELUCAST [Concomitant]
     Active Substance: MONTELUKAST SODIUM
  7. GUMMIES BASIC VITAMINS [Concomitant]
  8. ONION. [Concomitant]
     Active Substance: ONION
  9. THEOPHYLLINE [Concomitant]
     Active Substance: THEOPHYLLINE ANHYDROUS
  10. SPRING WATER [Concomitant]
  11. ANTIHYSTAMINE [Concomitant]
  12. CHAMOMILE [Concomitant]
     Active Substance: CHAMOMILE
  13. SPIRIVA [Concomitant]
     Active Substance: TIOTROPIUM BROMIDE MONOHYDRATE
  14. PERRIGO ALBUTEROL INHALER [Suspect]
     Active Substance: ALBUTEROL
     Indication: ASTHMA
     Route: 055
  15. PARSLEY. [Concomitant]
     Active Substance: PARSLEY

REACTIONS (6)
  - Choking [None]
  - Taste disorder [None]
  - Productive cough [None]
  - Respiratory tract irritation [None]
  - Device occlusion [None]
  - Oesophageal irritation [None]
